FAERS Safety Report 4379869-5 (Version None)
Quarter: 2004Q2

REPORT INFORMATION
  Report Type: 
  Country: None (occurrence: None)
  Receive Date: 20040614
  Receipt Date: 20040531
  Transmission Date: 20050107
  Serious: Yes (Life-Threatening)
  Sender: FDA-Public Use
  Company Number: 200410281BYL

PATIENT
  Age: 65 Year
  Sex: Male
  Weight: 51 kg

DRUGS (12)
  1. ASPIRIN [Suspect]
     Indication: AGE INDETERMINATE MYOCARDIAL INFARCTION
     Dosage: 200 MG, TOTAL DAILY, ORAL
     Route: 048
     Dates: start: 20040423
  2. WARFARIN SODIUM [Suspect]
     Dosage: 1 MG, QD, ORAL
     Route: 048
  3. ALLOPURINOL [Suspect]
     Indication: HYPERURICAEMIA
     Dosage: 100 MG, QD, ORAL
     Route: 048
     Dates: start: 20040429, end: 20040518
  4. PANALDINE (TICLOPIDINE HYDROCHLORIDE) [Suspect]
     Indication: CORONARY ARTERIAL STENT INSERTION
     Dosage: 200 MG, TOTAL DAILY, ORAL
     Route: 048
     Dates: start: 20040421, end: 20040518
  5. MEXITIL [Suspect]
     Indication: VENTRICULAR TACHYCARDIA
     Dosage: 300 MG, TOTAL DAILY, ORAL
     Route: 048
     Dates: start: 20040406, end: 20040518
  6. ENALAPRIL MALEATE [Suspect]
     Indication: CARDIAC FAILURE
     Dosage: 5 MG, BID, ORAL
     Route: 048
     Dates: start: 20040322, end: 20040518
  7. ALDACTONE-A [Concomitant]
  8. LASIX [Concomitant]
  9. ARTIST [Concomitant]
  10. PARIET [Concomitant]
  11. SELBEX [Concomitant]
  12. BIOFERMIN R [Concomitant]

REACTIONS (9)
  - AGRANULOCYTOSIS [None]
  - DIARRHOEA [None]
  - FATIGUE [None]
  - INFECTION [None]
  - NEUTROPHIL PERCENTAGE DECREASED [None]
  - PNEUMONIA [None]
  - PYREXIA [None]
  - RENAL FAILURE [None]
  - WHITE BLOOD CELL COUNT DECREASED [None]
